FAERS Safety Report 4262958-3 (Version None)
Quarter: 2004Q1

REPORT INFORMATION
  Report Type: 
  Country: None (occurrence: None)
  Receive Date: 20040102
  Receipt Date: 20040102
  Transmission Date: 20041129
  Serious: Yes (Hospitalization)
  Sender: FDA-Public Use
  Company Number: None

PATIENT
  Sex: Female
  Weight: 81 kg

DRUGS (3)
  1. PERPHENAZINE [Suspect]
     Dosage: SEE IMAGE
     Route: 048
  2. QUETIAPINE [Concomitant]
  3. SERTRALINE HCL [Concomitant]

REACTIONS (2)
  - DYSTONIA [None]
  - MEDICATION ERROR [None]
